FAERS Safety Report 8758528 (Version 1)
Quarter: 2012Q4

REPORT INFORMATION
  Report Type: Spontaneous
  Country: US (occurrence: None)
  Receive Date: 20120828
  Receipt Date: 20120828
  Transmission Date: 20130627
  Serious: No
  Sender: FDA-Public Use
  Company Number: None

PATIENT
  Age: 42 Year
  Sex: Female
  Weight: 94.35 kg

DRUGS (1)
  1. GABAPENTIN [Suspect]
     Indication: FIBROMYALGIA
     Dates: start: 20120817, end: 20120827

REACTIONS (5)
  - Paraesthesia [None]
  - Paraesthesia [None]
  - Pollakiuria [None]
  - Urinary tract pain [None]
  - Dyspepsia [None]
